FAERS Safety Report 4942680-8 (Version None)
Quarter: 2006Q1

REPORT INFORMATION
  Report Type: 
  Country: None (occurrence: None)
  Receive Date: 20060223
  Receipt Date: 20060216
  Transmission Date: 20060701
  Serious: Yes (Other)
  Sender: FDA-Public Use
  Company Number: 200610046BBE

PATIENT
  Age: 28 Year
  Sex: Female

DRUGS (1)
  1. HYPERHEP B S/D [Suspect]
     Dates: start: 20000408

REACTIONS (1)
  - HEPATITIS C ANTIBODY POSITIVE [None]
